FAERS Safety Report 5285083-1 (Version None)
Quarter: 2007Q1

REPORT INFORMATION
  Report Type: 
  Country: None (occurrence: None)
  Receive Date: 20061220
  Receipt Date: 20060807
  Transmission Date: 20070707
  Serious: Yes (Other)
  Sender: FDA-Public Use
  Company Number: WAES 0608USA01653

PATIENT
  Age: 67 Year
  Sex: Male

DRUGS (3)
  1. ZETIA [Suspect]
     Indication: BLOOD CHOLESTEROL INCREASED
     Dosage: 10 MG/DAILY/PO
     Route: 048
     Dates: start: 20060501, end: 20060101
  2. [THERAPY UNSPECIFIED] [Concomitant]
  3. STATIN [UNSPECIFIED] [Concomitant]

REACTIONS (1)
  - PANCREATITIS [None]
